FAERS Safety Report 6543723-0 (Version None)
Quarter: 2010Q1

REPORT INFORMATION
  Report Type: 
  Country: None (occurrence: None)
  Receive Date: 20100119
  Receipt Date: 20100119
  Transmission Date: 20100710
  Serious: No
  Sender: FDA-Public Use
  Company Number: None

PATIENT
  Age: 65 Year
  Sex: Female
  Weight: 81.6475 kg

DRUGS (1)
  1. ROLAIDS EXTRA STRENGTH MCNEIL [Suspect]
     Indication: GASTRIC PH DECREASED
     Dosage: 2 TABLETS WHEN NEEDED PO TAKEN MANY YEARS
     Route: 048

REACTIONS (5)
  - DIARRHOEA [None]
  - DISCOMFORT [None]
  - GASTRIC DISORDER [None]
  - NAUSEA [None]
  - PRODUCT QUALITY ISSUE [None]
